FAERS Safety Report 4904004-1 (Version None)
Quarter: 2006Q1

REPORT INFORMATION
  Report Type: 
  Country: None (occurrence: None)
  Receive Date: 20060208
  Receipt Date: 20060127
  Transmission Date: 20060701
  Serious: Yes (Other)
  Sender: FDA-Public Use
  Company Number: DE-GILEAD-2006-0009165

PATIENT
  Sex: Male

DRUGS (2)
  1. TRUVADA [Suspect]
  2. VIRAMUNE [Concomitant]

REACTIONS (6)
  - ALLERGIC GRANULOMATOUS ANGIITIS [None]
  - BLOOD IMMUNOGLOBULIN E INCREASED [None]
  - EOSINOPHILIA [None]
  - LUNG INFILTRATION [None]
  - PLEURAL EFFUSION [None]
  - PYREXIA [None]
